FAERS Safety Report 7860962-7 (Version None)
Quarter: 2011Q4

REPORT INFORMATION
  Report Type: 
  Country: None (occurrence: None)
  Receive Date: 20111027
  Receipt Date: 20111020
  Transmission Date: 20120403
  Serious: Yes (Hospitalization)
  Sender: FDA-Public Use
  Company Number: US-SANOFI-AVENTIS-2011SA069635

PATIENT
  Age: 70 Year
  Sex: Female

DRUGS (5)
  1. OTHER LIPID MODIFYING AGENTS [Concomitant]
  2. ASPIRIN [Concomitant]
  3. ANTI-DIABETICS [Concomitant]
  4. PLAVIX [Suspect]
     Indication: ACUTE CORONARY SYNDROME
     Route: 048
     Dates: start: 20080101
  5. ALL OTHER THERAPEUTIC PRODUCTS [Concomitant]

REACTIONS (3)
  - CORONARY ARTERY OCCLUSION [None]
  - URTICARIA [None]
  - HYPERSENSITIVITY [None]
